FAERS Safety Report 16192274 (Version 3)
Quarter: 2019Q3

REPORT INFORMATION
  Report Type: Spontaneous
  Country: GB (occurrence: GB)
  Receive Date: 20190412
  Receipt Date: 20190708
  Transmission Date: 20191004
  Serious: Yes (Death, Hospitalization, Other)
  Sender: FDA-Public Use
  Company Number: GB-PFIZER INC-2019146699

PATIENT
  Age: 80 Year
  Sex: Male

DRUGS (1)
  1. METHOTREXATE SODIUM. [Suspect]
     Active Substance: METHOTREXATE SODIUM
     Indication: PSORIASIS
     Dosage: UNK, WEEKLY (LOW-DOSE, AVERAGE WEEKLY DOSE OF 5MG)

REACTIONS (3)
  - Respiratory failure [Unknown]
  - Pulmonary hypertension [Unknown]
  - Idiopathic pulmonary fibrosis [Fatal]
